FAERS Safety Report 20071208 (Version 1)
Quarter: 2021Q4

REPORT INFORMATION
  Report Type: Report from Study
  Country: US (occurrence: US)
  Receive Date: 20211115
  Receipt Date: 20211115
  Transmission Date: 20220303
  Serious: Yes (Life-Threatening, Hospitalization)
  Sender: FDA-Public Use
  Company Number: US-BRISTOL-MYERS SQUIBB COMPANY-BMS-2021-121344

PATIENT
  Age: 62 Year
  Sex: Male
  Weight: 97.3 kg

DRUGS (5)
  1. NIVOLUMAB [Suspect]
     Active Substance: NIVOLUMAB
     Indication: Hodgkin^s disease
     Dosage: 240 MG ON DAYS 1 AND 5 EVERY Q28D
     Route: 042
     Dates: start: 20210504, end: 20210713
  2. BRENTUXIMAB VEDOTIN [Suspect]
     Active Substance: BRENTUXIMAB VEDOTIN
     Indication: Hodgkin^s disease
     Dosage: 1.2 MG/KG ON AYS 1 AND 15 OF EVERY Q28D
     Route: 042
     Dates: start: 20210504, end: 20210913
  3. DOXORUBICIN HYDROCHLORIDE [Suspect]
     Active Substance: DOXORUBICIN HYDROCHLORIDE
     Indication: Hodgkin^s disease
     Dosage: 25 MG/M2, ON DAY1 AND 15 OF EVERY Q28D
     Route: 042
     Dates: start: 20210504, end: 20210913
  4. DACARBAZINE [Suspect]
     Active Substance: DACARBAZINE
     Indication: Hodgkin^s disease
     Dosage: 375 MG/M2, ON DAYS 1 AND 15 EVERY Q28D
     Route: 042
     Dates: start: 20210504, end: 20210913
  5. PEGFILGRASTIM [Suspect]
     Active Substance: PEGFILGRASTIM
     Indication: Hodgkin^s disease
     Dosage: 6 MILLIGRAM
     Route: 065
     Dates: start: 20210504, end: 20210713

REACTIONS (1)
  - Pneumonitis [Unknown]

NARRATIVE: CASE EVENT DATE: 20211030
